FAERS Safety Report 16056299 (Version 1)
Quarter: 2019Q1

REPORT INFORMATION
  Report Type: Spontaneous
  Country: US (occurrence: US)
  Receive Date: 20190311
  Receipt Date: 20190311
  Transmission Date: 20190418
  Serious: No
  Sender: FDA-Public Use
  Company Number: US-GLENMARK PHARMACEUTICALS-2019GMK039308

PATIENT

DRUGS (1)
  1. VIORELE [Suspect]
     Active Substance: DESOGESTREL\ETHINYL ESTRADIOL
     Indication: CONTRACEPTION
     Dosage: UNK; START DATE: UNSPECIFIED (A FEW YEARS)
     Route: 065

REACTIONS (2)
  - Intentional product use issue [Unknown]
  - Intentional dose omission [Unknown]
